FAERS Safety Report 14989854 (Version 1)
Quarter: 2018Q2

REPORT INFORMATION
  Report Type: Spontaneous
  Country: US (occurrence: US)
  Receive Date: 20180608
  Receipt Date: 20180608
  Transmission Date: 20180711
  Serious: No
  Sender: FDA-Public Use
  Company Number: US-ROCHE-1942046

PATIENT
  Age: 34 Year
  Sex: Female

DRUGS (1)
  1. ACTEMRA [Suspect]
     Active Substance: TOCILIZUMAB
     Indication: JUVENILE IDIOPATHIC ARTHRITIS
     Dosage: DOSE: 162MG/0.9 ML
     Route: 058
     Dates: start: 20170127

REACTIONS (4)
  - Erythema [Not Recovered/Not Resolved]
  - Skin infection [Not Recovered/Not Resolved]
  - Blister [Not Recovered/Not Resolved]
  - Ingrown hair [Not Recovered/Not Resolved]

NARRATIVE: CASE EVENT DATE: 20170530
